FAERS Safety Report 8624524-6 (Version None)
Quarter: 2012Q3

REPORT INFORMATION
  Report Type: 
  Country: None (occurrence: None)
  Receive Date: 20120827
  Receipt Date: 20120817
  Transmission Date: 20120928
  Serious: Yes (Hospitalization)
  Sender: FDA-Public Use
  Company Number: US-JNJFOC-20120800977

PATIENT
  Sex: Male
  Weight: 122.02 kg

DRUGS (10)
  1. INVEGA SUSTENNA [Suspect]
     Indication: BIPOLAR DISORDER
     Route: 030
     Dates: start: 20120701
  2. TOPAMAX [Suspect]
     Indication: PSYCHOTIC DISORDER
     Route: 065
     Dates: start: 20120101
  3. SAPHRIS [Suspect]
     Indication: BIPOLAR DISORDER
     Dosage: 5-10 MG
     Route: 065
     Dates: start: 20120701
  4. WELLBUTRIN [Suspect]
     Indication: PSYCHOTIC DISORDER
     Dosage: 300-450 MG
     Route: 048
     Dates: start: 20101101
  5. SERTRALINE HYDROCHLORIDE [Suspect]
     Indication: BIPOLAR DISORDER
     Route: 065
     Dates: start: 20120101
  6. SAPHRIS [Suspect]
     Indication: PSYCHOTIC DISORDER
     Dosage: 5-10 MG
     Route: 065
     Dates: start: 20120701
  7. SERTRALINE HYDROCHLORIDE [Suspect]
     Indication: PSYCHOTIC DISORDER
     Route: 065
     Dates: start: 20120101
  8. WELLBUTRIN [Suspect]
     Indication: BIPOLAR DISORDER
     Dosage: 300-450 MG
     Route: 048
     Dates: start: 20101101
  9. INVEGA SUSTENNA [Suspect]
     Indication: PSYCHOTIC DISORDER
     Route: 030
     Dates: start: 20120701
  10. TOPAMAX [Suspect]
     Indication: BIPOLAR DISORDER
     Route: 065
     Dates: start: 20120101

REACTIONS (3)
  - HOSPITALISATION [None]
  - TREATMENT NONCOMPLIANCE [None]
  - DRUG INEFFECTIVE [None]
